FAERS Safety Report 5525564-6 (Version None)
Quarter: 2007Q4

REPORT INFORMATION
  Report Type: 
  Country: None (occurrence: None)
  Receive Date: 20071126
  Receipt Date: 20071119
  Transmission Date: 20080405
  Serious: Yes (Hospitalization, Disabling)
  Sender: FDA-Public Use
  Company Number: B0494700A

PATIENT
  Age: 79 Year
  Sex: Male
  Weight: 63 kg

DRUGS (6)
  1. ARIXTRA [Suspect]
     Indication: THROMBOSIS PROPHYLAXIS
     Dosage: 2.5MG PER DAY
     Route: 058
     Dates: start: 20071029, end: 20071101
  2. LOXONIN [Suspect]
     Indication: PAIN
     Dosage: 60MG THREE TIMES PER DAY
     Route: 048
     Dates: start: 20071027, end: 20071102
  3. FRANDOL S [Concomitant]
     Dosage: 40MG PER DAY
     Route: 062
     Dates: start: 20071027
  4. MAGMITT [Concomitant]
     Indication: CONSTIPATION
     Dosage: 330MG THREE TIMES PER DAY
     Route: 048
     Dates: start: 20071029
  5. SELBEX [Concomitant]
     Indication: PROPHYLAXIS
     Dosage: 50MG THREE TIMES PER DAY
     Route: 048
     Dates: start: 20071027, end: 20071102
  6. UNASYN [Concomitant]
     Indication: DRUG USE FOR UNKNOWN INDICATION
     Dosage: 3G PER DAY

REACTIONS (7)
  - DIZZINESS [None]
  - FAECES DISCOLOURED [None]
  - GASTRIC ULCER HAEMORRHAGE [None]
  - HAEMOSTASIS [None]
  - MELAENA [None]
  - PALLOR [None]
  - STRESS [None]
